FAERS Safety Report 19002182 (Version 2)
Quarter: 2021Q1

REPORT INFORMATION
  Report Type: Other
  Country: US (occurrence: US)
  Receive Date: 20210312
  Receipt Date: 20210324
  Transmission Date: 20210420
  Serious: Yes (Other)
  Sender: FDA-Public Use
  Company Number: US-ROCHE-2785428

PATIENT
  Age: 53 Year
  Sex: Female
  Weight: 82.81 kg

DRUGS (12)
  1. DITROPAN XL [Concomitant]
     Active Substance: OXYBUTYNIN CHLORIDE
     Indication: INCONTINENCE
     Route: 048
  2. ESTER C (UNITED STATES) [Concomitant]
     Dosage: TAKES 3 X 1000 MG EVERY MORNING (3000 MG TOTAL)
     Route: 048
  3. DALFAMPRIDINE. [Concomitant]
     Active Substance: DALFAMPRIDINE
     Route: 048
  4. BENADRYL [Concomitant]
     Active Substance: DIPHENHYDRAMINE HYDROCHLORIDE
     Indication: PREMEDICATION
  5. VALIUM [Suspect]
     Active Substance: DIAZEPAM
     Indication: ANXIETY
  6. NORCO [Concomitant]
     Active Substance: ACETAMINOPHEN\HYDROCODONE BITARTRATE
     Dosage: 10/325 EVERY 6 HOURS AS NEEDED
     Route: 048
  7. VALIUM [Suspect]
     Active Substance: DIAZEPAM
     Indication: MUSCLE SPASMS
     Route: 048
     Dates: start: 2019
  8. FLEXERIL [Concomitant]
     Active Substance: CYCLOBENZAPRINE HYDROCHLORIDE
     Indication: BACK PAIN
     Dosage: TWICE A DAY AS NEEDED
     Route: 048
  9. NEXIUM [Concomitant]
     Active Substance: ESOMEPRAZOLE MAGNESIUM
     Indication: GASTROOESOPHAGEAL REFLUX DISEASE
     Route: 048
  10. OCREVUS [Suspect]
     Active Substance: OCRELIZUMAB
     Route: 042
  11. OCREVUS [Suspect]
     Active Substance: OCRELIZUMAB
     Indication: RELAPSING-REMITTING MULTIPLE SCLEROSIS
     Route: 042
     Dates: start: 20201020
  12. ALBUTEROL. [Concomitant]
     Active Substance: ALBUTEROL
     Indication: ASTHMA

REACTIONS (10)
  - Fall [Unknown]
  - Product prescribing error [Unknown]
  - Multiple sclerosis relapse [Recovered/Resolved]
  - Deafness [Unknown]
  - Urinary tract infection [Recovered/Resolved]
  - Diplopia [Recovering/Resolving]
  - Gait disturbance [Recovering/Resolving]
  - Neuralgia [Not Recovered/Not Resolved]
  - Vision blurred [Recovering/Resolving]
  - Vulvovaginal injury [Unknown]

NARRATIVE: CASE EVENT DATE: 2020
